FAERS Safety Report 9318979 (Version 1)
Quarter: 2013Q2

REPORT INFORMATION
  Report Type: Spontaneous
  Country: IE (occurrence: None)
  Receive Date: 20130520
  Receipt Date: 20130520
  Transmission Date: 20140414
  Serious: Yes (Other)
  Sender: FDA-Public Use
  Company Number: 2013036042

PATIENT
  Age: 36 Year
  Sex: Female

DRUGS (2)
  1. IVIG (IMMUNE GLOBULIN INTRAVENOUS (HUMAN) 10% LIQUID) [Suspect]
     Indication: IN VITRO FERTILISATION
  2. STEROIDS (CORTICOSTEROIDS) [Suspect]

REACTIONS (5)
  - Infection susceptibility increased [None]
  - Caesarean section [None]
  - Maternal exposure during pregnancy [None]
  - Toxoplasmosis [None]
  - Cytomegalovirus infection [None]
